FAERS Safety Report 22298198 (Version 1)
Quarter: 2023Q2

REPORT INFORMATION
  Report Type: Spontaneous
  Country: DK (occurrence: DK)
  Receive Date: 20230509
  Receipt Date: 20230509
  Transmission Date: 20230721
  Serious: Yes (Other)
  Sender: FDA-Public Use
  Company Number: DK-GRUNENTHAL-2023-102749

PATIENT
  Age: 4 Decade
  Sex: Male

DRUGS (2)
  1. SERTRALINE [Interacting]
     Active Substance: SERTRALINE HYDROCHLORIDE
     Indication: Depression
     Dosage: 150 MILLIGRAM DAILY, ONCE A DAY
  2. TRAMADOL HYDROCHLORIDE [Interacting]
     Active Substance: TRAMADOL HYDROCHLORIDE
     Indication: Procedural pain
     Dosage: 200 MILLIGRAM DAILY; 50 MG FOUR TIMES A DAY

REACTIONS (3)
  - Hypophagia [Unknown]
  - General physical health deterioration [Unknown]
  - Serotonin syndrome [Unknown]
